FAERS Safety Report 7289465-8 (Version None)
Quarter: 2011Q1

REPORT INFORMATION
  Report Type: 
  Country: None (occurrence: None)
  Receive Date: 20110211
  Receipt Date: 20110207
  Transmission Date: 20110831
  Serious: Yes (Hospitalization)
  Sender: FDA-Public Use
  Company Number: US-RB-020847-11

PATIENT
  Age: 37 Year
  Sex: Female

DRUGS (2)
  1. SUBOXONE [Suspect]
     Indication: DRUG DEPENDENCE
     Route: 060
     Dates: start: 20090101, end: 20110101
  2. SUBOXONE [Suspect]
     Route: 060
     Dates: start: 20110101

REACTIONS (4)
  - ABDOMINAL PAIN [None]
  - HYPONATRAEMIA [None]
  - INTENTIONAL DRUG MISUSE [None]
  - AMENORRHOEA [None]
